FAERS Safety Report 21290498 (Version 2)
Quarter: 2022Q3

REPORT INFORMATION
  Report Type: Spontaneous
  Country: FR (occurrence: FR)
  Receive Date: 20220903
  Receipt Date: 20220926
  Transmission Date: 20221027
  Serious: No
  Sender: FDA-Public Use
  Company Number: FR-SANOFI-01250911

PATIENT
  Age: 70 Year
  Sex: Male

DRUGS (3)
  1. RIFAMPIN [Suspect]
     Active Substance: RIFAMPIN
     Indication: Device related infection
     Dosage: 900 MG, QD
  2. LEVOFLOXACIN [Suspect]
     Active Substance: LEVOFLOXACIN
     Indication: Arthritis infective
     Dosage: 500 MG, BID
  3. RANITIDINE [Concomitant]
     Active Substance: RANITIDINE

REACTIONS (4)
  - Malabsorption from administration site [Recovered/Resolved]
  - Vomiting [Unknown]
  - Overdose [Unknown]
  - Product use issue [Unknown]
